FAERS Safety Report 13541312 (Version 1)
Quarter: 2017Q2

REPORT INFORMATION
  Report Type: Spontaneous
  Country: US (occurrence: US)
  Receive Date: 20170512
  Receipt Date: 20170512
  Transmission Date: 20170830
  Serious: No
  Sender: FDA-Public Use
  Company Number: US-B.I. PHARMACEUTICALS,INC./RIDGEFIELD-2017-BI-025822

PATIENT
  Age: 65 Year
  Sex: Male

DRUGS (4)
  1. GILOTRIF [Suspect]
     Active Substance: AFATINIB
     Indication: OESOPHAGEAL CARCINOMA
     Dosage: ONCE DAILY;  FORM STRENGTH: 30 MG; FORMULATION: TABLET? ADMINISTRATION CORRECT? YES ?ACTION(S) TAKEN
     Route: 048
     Dates: start: 20170325, end: 20170405
  2. TAMSULOSIN [Concomitant]
     Active Substance: TAMSULOSIN
     Indication: BENIGN PROSTATIC HYPERPLASIA
     Dosage: ONCE DAILY;  FORM STRENGTH: 0.4MG; FORMULATION: TABLET
     Route: 048
  3. OMEPRAZOLE. [Concomitant]
     Active Substance: OMEPRAZOLE
     Indication: GASTROOESOPHAGEAL REFLUX DISEASE
     Dosage: ONCE DAILY;  FORM STRENGTH: 40MG; FORMULATION: TABLET
     Route: 048
  4. AMBIEN [Concomitant]
     Active Substance: ZOLPIDEM TARTRATE
     Indication: INSOMNIA
     Dosage: ONCE NIGHTLY;  FORM STRENGTH: 10MG; FORMULATION: TABLET
     Route: 048

REACTIONS (5)
  - Dizziness [Not Recovered/Not Resolved]
  - Acne [Recovered/Resolved]
  - Rash [Recovered/Resolved]
  - Dyspnoea [Not Recovered/Not Resolved]
  - Pneumonitis [Not Recovered/Not Resolved]

NARRATIVE: CASE EVENT DATE: 201703
